FAERS Safety Report 22085200 (Version 2)
Quarter: 2023Q1

REPORT INFORMATION
  Report Type: Spontaneous
  Country: US (occurrence: US)
  Receive Date: 20230310
  Receipt Date: 20230317
  Transmission Date: 20230417
  Serious: Yes (Other)
  Sender: FDA-Public Use
  Company Number: US-PFIZER INC-PV202300044706

PATIENT
  Age: 60 Year
  Sex: Female

DRUGS (1)
  1. IBRANCE [Suspect]
     Active Substance: PALBOCICLIB
     Indication: Breast cancer female
     Dosage: 100 MG

REACTIONS (10)
  - Rectal haemorrhage [Unknown]
  - Diverticulitis [Unknown]
  - Neoplasm progression [Unknown]
  - Urge incontinence [Unknown]
  - Vitamin B complex deficiency [Unknown]
  - Cardiac murmur [Unknown]
  - Type V hyperlipidaemia [Unknown]
  - Nasal septum deviation [Unknown]
  - Chronic fatigue syndrome [Unknown]
  - Depressed mood [Unknown]

NARRATIVE: CASE EVENT DATE: 20170101
